FAERS Safety Report 19243471 (Version 2)
Quarter: 2021Q3

REPORT INFORMATION
  Report Type: Report from Study
  Country: CA (occurrence: CA)
  Receive Date: 20210511
  Receipt Date: 20210722
  Transmission Date: 20211014
  Serious: Yes (Other)
  Sender: FDA-Public Use
  Company Number: CA-JNJFOC-20210514991

PATIENT
  Age: 17 Year
  Sex: Male
  Weight: 55.4 kg

DRUGS (2)
  1. REMICADE [Suspect]
     Active Substance: INFLIXIMAB
     Dosage: WEIGHT: 55.4 X 10 = 554 MG, DOSE ROUNDED TO 600 MG
     Route: 042
  2. REMICADE [Suspect]
     Active Substance: INFLIXIMAB
     Indication: CROHN^S DISEASE
     Route: 042
     Dates: start: 20150915

REACTIONS (5)
  - Abdominal abscess [Not Recovered/Not Resolved]
  - Off label use [Unknown]
  - Skin infection [Unknown]
  - Incorrect dose administered [Unknown]
  - Weight increased [Not Recovered/Not Resolved]

NARRATIVE: CASE EVENT DATE: 2021
